FAERS Safety Report 5746085-1 (Version None)
Quarter: 2008Q2

REPORT INFORMATION
  Report Type: 
  Country: None (occurrence: None)
  Receive Date: 20080522
  Receipt Date: 20071016
  Transmission Date: 20081010
  Serious: No
  Sender: FDA-Public Use
  Company Number: A0667672A

PATIENT
  Age: 61 Year
  Sex: Female

DRUGS (1)
  1. BACTROBAN [Suspect]
     Indication: SKIN INFECTION
     Dosage: 2PCT THREE TIMES PER DAY
     Route: 061
     Dates: start: 20070721, end: 20070725

REACTIONS (6)
  - ANXIETY [None]
  - PRURITUS [None]
  - RASH PUSTULAR [None]
  - SKIN INFECTION [None]
  - SKIN LESION [None]
  - SWELLING [None]
